FAERS Safety Report 5265316-8 (Version None)
Quarter: 2007Q1

REPORT INFORMATION
  Report Type: 
  Country: None (occurrence: None)
  Receive Date: 20070314
  Receipt Date: 20070302
  Transmission Date: 20070707
  Serious: Yes (Hospitalization)
  Sender: FDA-Public Use
  Company Number: US-SHR-US-2006-022183

PATIENT
  Age: 37 Year
  Sex: Female
  Weight: 88.435 kg

DRUGS (10)
  1. BETASERON [Suspect]
     Indication: RELAPSING-REMITTING MULTIPLE SCLEROSIS
     Dosage: 8 MIU, EVERY 2D
     Route: 058
     Dates: start: 20060301, end: 20060802
  2. CLONAZEPAM [Concomitant]
     Indication: MULTIPLE SCLEROSIS
     Dosage: .25 MG, BED T.
     Route: 048
  3. LEXAPRO [Concomitant]
     Indication: DEPRESSION
     Dosage: 10 MG, 1X/DAY
     Route: 048
  4. PROGESTERONE [Concomitant]
     Dosage: .5 G, BED T.
     Route: 061
  5. SKELAXIN [Concomitant]
     Dosage: 800 MG, EVERY 8H
  6. ADRENAL REBUILDER FORMULA [Concomitant]
     Dosage: 4 TAB(S), 1X/DAY
     Route: 048
  7. ADRENALIN VITAMIN C [Concomitant]
     Dosage: 4 TAB(S), 1X/DAY
  8. VITAMIN CAP [Concomitant]
     Dosage: 4 TAB(S), 1X/DAY
  9. CALCIUM [Concomitant]
     Dosage: 4 TAB(S), 1X/DAY
  10. TYLENOL [Concomitant]

REACTIONS (7)
  - BENIGN HEPATIC NEOPLASM [None]
  - HAEMANGIOMA [None]
  - HEPATIC ADENOMA [None]
  - HEPATIC CYST [None]
  - HEPATIC ENZYME INCREASED [None]
  - RENAL CYST [None]
  - THROMBOSIS [None]
